FAERS Safety Report 12463307 (Version 3)
Quarter: 2016Q3

REPORT INFORMATION
  Report Type: Spontaneous
  Country: PL (occurrence: PL)
  Receive Date: 20160614
  Receipt Date: 20160715
  Transmission Date: 20161109
  Serious: Yes (Hospitalization, Other)
  Sender: FDA-Public Use
  Company Number: PL-009507513-1606POL005126

PATIENT
  Age: 2 Year
  Sex: Female
  Weight: 17 kg

DRUGS (10)
  1. BISEPTOL (SULFAMETHOXAZOLE (+) TRIMETHOPRIM) [Concomitant]
  2. TRAMAL [Concomitant]
     Active Substance: TRAMADOL
     Dosage: UNK
     Dates: end: 20160607
  3. NO SPA [Concomitant]
  4. VINCRISTINE SULFATE. [Suspect]
     Active Substance: VINCRISTINE SULFATE
     Indication: ACUTE LYMPHOCYTIC LEUKAEMIA
     Dosage: 0.9 MG ONCE A WEEK
     Route: 042
     Dates: start: 20160523, end: 20160606
  5. DEXAMETHASONE. [Concomitant]
     Active Substance: DEXAMETHASONE
  6. ERWINASE [Concomitant]
     Active Substance: ASPARAGINASE ERWINIA CHRYSANTHEMI
     Dosage: 10000 UNIT/VIAL
     Dates: end: 20160607
  7. NOXAFIL [Suspect]
     Active Substance: POSACONAZOLE
     Indication: PROPHYLAXIS
     Dosage: 3 TIMES A DAY
     Route: 048
     Dates: start: 20160523, end: 20160607
  8. HEPA-MERZ [Concomitant]
     Dosage: UNK
  9. HYDROXYZINE [Concomitant]
     Active Substance: HYDROXYZINE\HYDROXYZINE HYDROCHLORIDE
     Dosage: UNK
     Dates: end: 20160607
  10. METRONIDAZOLE. [Concomitant]
     Active Substance: METRONIDAZOLE

REACTIONS (6)
  - Posterior reversible encephalopathy syndrome [Recovered/Resolved]
  - Decreased eye contact [Recovered/Resolved]
  - Mydriasis [Recovered/Resolved]
  - Product use issue [Unknown]
  - Stupor [Recovered/Resolved]
  - Hypertension [Recovered/Resolved]

NARRATIVE: CASE EVENT DATE: 20160523
